FAERS Safety Report 6054396-8 (Version None)
Quarter: 2009Q1

REPORT INFORMATION
  Report Type: 
  Country: None (occurrence: None)
  Receive Date: 20090127
  Receipt Date: 20090119
  Transmission Date: 20090719
  Serious: Yes (Other)
  Sender: FDA-Public Use
  Company Number: PHHY2009AR02200

PATIENT
  Sex: Female

DRUGS (2)
  1. EXFORGE [Suspect]
     Indication: HYPERTENSION
     Dosage: 1 TAB
     Dates: start: 20081010, end: 20090105
  2. DIOVAN HCT [Concomitant]
     Dosage: 25/160 MG

REACTIONS (1)
  - ROSACEA [None]
